FAERS Safety Report 4457555-0 (Version None)
Quarter: 2004Q3

REPORT INFORMATION
  Report Type: 
  Country: None (occurrence: None)
  Receive Date: 20040922
  Receipt Date: 20040830
  Transmission Date: 20050211
  Serious: Yes (Hospitalization)
  Sender: FDA-Public Use
  Company Number: 042-04

PATIENT
  Age: 61 Year
  Sex: Female

DRUGS (1)
  1. CLONIDINE [Suspect]
     Dosage: 0.1 MG/DAY
     Dates: start: 20040818, end: 20040829

REACTIONS (4)
  - ABDOMINAL PAIN UPPER [None]
  - BODY TEMPERATURE INCREASED [None]
  - DIVERTICULITIS [None]
  - WHITE BLOOD CELL COUNT INCREASED [None]
